FAERS Safety Report 10247081 (Version 3)
Quarter: 2014Q2

REPORT INFORMATION
  Report Type: Report from Study
  Country: US (occurrence: US)
  Receive Date: 20140619
  Receipt Date: 20140627
  Transmission Date: 20141212
  Serious: Yes (Hospitalization)
  Sender: FDA-Public Use
  Company Number: US-GLAXOSMITHKLINE-Z0022820A

PATIENT
  Age: 60 Year
  Sex: Male
  Weight: 85.2 kg

DRUGS (6)
  1. OFATUMUMAB [Suspect]
     Indication: NON-HODGKIN^S LYMPHOMA
     Dosage: 1000MG CYCLIC
     Route: 042
     Dates: start: 20140520
  2. BENDAMUSTINE [Suspect]
     Indication: NON-HODGKIN^S LYMPHOMA
     Dosage: 90MGM2 CYCLIC
     Route: 042
     Dates: start: 20140513
  3. CEFEPIME [Concomitant]
     Indication: FEBRILE NEUTROPENIA
     Dosage: 2G TWICE PER DAY
     Route: 042
     Dates: start: 20140617, end: 20140620
  4. LEVAQUIN [Concomitant]
     Indication: SINUSITIS
     Dosage: 750MG PER DAY
     Route: 048
     Dates: start: 20140620
  5. ACYCLOVIR [Concomitant]
     Indication: FEBRILE NEUTROPENIA
     Dosage: 400MG PER DAY
     Route: 048
     Dates: start: 20140620
  6. CODEINE + GUAIFENESIN [Concomitant]
     Indication: COUGH
     Dosage: 10ML SIX TIMES PER DAY
     Route: 048
     Dates: start: 20140617, end: 20140620

REACTIONS (1)
  - Febrile neutropenia [Recovered/Resolved]
